APPROVED DRUG PRODUCT: PANRETIN
Active Ingredient: ALITRETINOIN
Strength: EQ 0.1% BASE
Dosage Form/Route: GEL;TOPICAL
Application: N020886 | Product #001
Applicant: ADVANZ PHARMA (US) CORP
Approved: Feb 2, 1999 | RLD: Yes | RS: Yes | Type: RX